FAERS Safety Report 19798488 (Version 1)
Quarter: 2021Q3

REPORT INFORMATION
  Report Type: Spontaneous
  Country: ES (occurrence: ES)
  Receive Date: 20210907
  Receipt Date: 20210907
  Transmission Date: 20211014
  Serious: Yes (Hospitalization, Other)
  Sender: FDA-Public Use
  Company Number: ES-TEVA-2021-ES-1948967

PATIENT
  Age: 82 Year
  Sex: Male

DRUGS (15)
  1. FUROSEMIDA (1615A) [Concomitant]
     Active Substance: FUROSEMIDE
  2. VORICONAZOL 100 MG COMPRIMIDO [Suspect]
     Active Substance: VORICONAZOLE
     Indication: BRONCHOPULMONARY ASPERGILLOSIS
     Dosage: 100MILLIGRAM
     Route: 048
     Dates: start: 202107, end: 20210813
  3. SEPTRIN FORTE 160 MG/800 MG COMPRIMIDOS [Concomitant]
     Dosage: 2DOSAGEFORM
  4. HIDROFEROL [Concomitant]
     Active Substance: CALCIFEDIOL
     Dosage: 1DOSAGEFORM
  5. OMEPRAZOL (2141A) [Concomitant]
     Active Substance: OMEPRAZOLE
  6. FERROSANOL [Concomitant]
     Active Substance: FERROUS GLUCONATE
  7. TRANSTEC 52,5 MICROGRAMOS/H PARCHE TRANSDERMICO [Concomitant]
  8. AMIODARONA (392A) [Concomitant]
     Active Substance: AMIODARONE
     Dosage: 1 DOSAGE FORMS DAILY; 1?0?0 EXCEPT THURSDAY AND SUNDAY
  9. AMLODIPINO (2503A) [Concomitant]
     Active Substance: AMLODIPINE BESYLATE
  10. ZYLORIC 100 MG COMPRIMIDOS [Concomitant]
  11. PREDNISONA 10 MG COMPRIMIDO [Suspect]
     Active Substance: PREDNISONE
     Dosage: 10MILLIGRAM
     Dates: start: 202107
  12. LORMETAZEPAM 2 MG COMPRIMIDO [Concomitant]
  13. ENALAPRIL (2142A) [Concomitant]
     Active Substance: ENALAPRIL
  14. COLCHICINA (142A) [Concomitant]
     Active Substance: COLCHICINE
  15. ELIQUIS [Concomitant]
     Active Substance: APIXABAN
     Indication: ATRIAL FIBRILLATION
     Dosage: 5MILLIGRAM

REACTIONS (2)
  - Adrenal insufficiency [Recovering/Resolving]
  - Hallucination, visual [Recovering/Resolving]

NARRATIVE: CASE EVENT DATE: 202107
